FAERS Safety Report 20258452 (Version 1)
Quarter: 2021Q4

REPORT INFORMATION
  Report Type: Spontaneous
  Country: DE (occurrence: DE)
  Receive Date: 20211230
  Receipt Date: 20211230
  Transmission Date: 20220303
  Serious: Yes (Hospitalization)
  Sender: FDA-Public Use
  Company Number: DE-ADRED-07396-01

PATIENT
  Age: 72 Year
  Sex: Male

DRUGS (6)
  1. BISOPROLOL [Interacting]
     Active Substance: BISOPROLOL
     Dosage: 5 MILLIGRAM DAILY; 2.5 MG, 1-0-1-0
     Route: 048
  2. AMIODARONE [Interacting]
     Active Substance: AMIODARONE
     Dosage: 200 MG, DISCONTINUED
     Route: 048
  3. EDOXABAN [Concomitant]
     Active Substance: EDOXABAN
     Dosage: 60 MILLIGRAM DAILY; 60 MG, 1-0-0-0
     Route: 048
  4. TAMSULOSIN [Concomitant]
     Active Substance: TAMSULOSIN
     Dosage: .4 MILLIGRAM DAILY; 0.4 MG, 0-0-1-0
     Route: 048
  5. METAMIZOL [Concomitant]
     Active Substance: METAMIZOLE SODIUM
     Dosage: 500 MG, UP TO FOUR TIMES A DAY IF NECESSARY FOR PAIN
     Route: 048
  6. PANTOPRAZOLE SODIUM [Concomitant]
     Active Substance: PANTOPRAZOLE SODIUM
     Dosage: 40 MILLIGRAM DAILY; 40 MG, 1-0-0-0
     Route: 048

REACTIONS (5)
  - Weight increased [Unknown]
  - Product monitoring error [Unknown]
  - Labelled drug-drug interaction medication error [Unknown]
  - Bradycardia [Unknown]
  - Hypertension [Unknown]
